FAERS Safety Report 7470676-3 (Version None)
Quarter: 2011Q2

REPORT INFORMATION
  Report Type: 
  Country: None (occurrence: None)
  Receive Date: 20110506
  Receipt Date: 20110506
  Transmission Date: 20111010
  Serious: Yes (Other)
  Sender: FDA-Public Use
  Company Number: None

PATIENT
  Age: 14 Year
  Sex: Male
  Weight: 77.1115 kg

DRUGS (1)
  1. SINGULAIR [Suspect]
     Indication: MULTIPLE ALLERGIES
     Dosage: 10MG ONCE A DAY PO
     Route: 048
     Dates: start: 20110215, end: 20110429

REACTIONS (6)
  - CONVULSION [None]
  - INSOMNIA [None]
  - MOOD ALTERED [None]
  - RESTLESSNESS [None]
  - ANGER [None]
  - WEIGHT INCREASED [None]
